FAERS Safety Report 7089961-2 (Version None)
Quarter: 2010Q4

REPORT INFORMATION
  Report Type: 
  Country: None (occurrence: None)
  Receive Date: 20101109
  Receipt Date: 20101026
  Transmission Date: 20110411
  Serious: Yes (Hospitalization)
  Sender: FDA-Public Use
  Company Number: IL-AMGEN-ISRSP2010001831

PATIENT

DRUGS (5)
  1. ENBREL [Suspect]
     Indication: RHEUMATOID ARTHRITIS
     Dates: start: 20100101, end: 20100101
  2. ENBREL [Suspect]
     Indication: PSORIASIS
  3. ARAVA [Suspect]
     Dosage: UNKNOWN
  4. LIPITOR [Concomitant]
  5. PRILOSEC [Concomitant]

REACTIONS (2)
  - DYSPNOEA [None]
  - PNEUMONIA [None]
